FAERS Safety Report 7247416-6 (Version None)
Quarter: 2011Q1

REPORT INFORMATION
  Report Type: 
  Country: None (occurrence: None)
  Receive Date: 20110127
  Receipt Date: 20110118
  Transmission Date: 20110831
  Serious: Yes (Other)
  Sender: FDA-Public Use
  Company Number: PHHY2010US72086

PATIENT
  Sex: Female

DRUGS (14)
  1. RECLAST [Suspect]
     Indication: ARTHRITIS
  2. ESTROGEN NOS [Concomitant]
  3. RECLAST [Suspect]
     Indication: OSTEOPOROSIS
     Dosage: UNK
     Dates: start: 20101012
  4. FOSAMAX [Suspect]
     Dosage: 2 TABLETS, ONCE A DAY
  5. NEURONTIN [Concomitant]
  6. ZYRTEC [Concomitant]
  7. VITAMIN D2 [Concomitant]
     Dosage: 5000 UNITS
  8. LOVAZA [Concomitant]
  9. BONIVA [Suspect]
     Dosage: 2 TABLETS, ONCE A DAY
  10. AMITRIPTYLINE [Concomitant]
     Dosage: 25 MG
  11. MULTI-VITAMINS [Concomitant]
     Dosage: ONCE A DAY
  12. RECLAST [Suspect]
     Indication: OSTEOPENIA
  13. FLAXSEED OIL [Concomitant]
  14. CALCIUM [Concomitant]

REACTIONS (23)
  - INFLUENZA LIKE ILLNESS [None]
  - PARAESTHESIA [None]
  - BLOOD GLUCOSE INCREASED [None]
  - THIRST [None]
  - PAIN [None]
  - FATIGUE [None]
  - NEUROPATHY PERIPHERAL [None]
  - TENDERNESS [None]
  - COORDINATION ABNORMAL [None]
  - HYPERHIDROSIS [None]
  - FEELING COLD [None]
  - NAUSEA [None]
  - GAIT DISTURBANCE [None]
  - CHILLS [None]
  - NEURALGIA [None]
  - PAIN IN EXTREMITY [None]
  - PYREXIA [None]
  - DIARRHOEA [None]
  - PERIPHERAL COLDNESS [None]
  - ARTHRALGIA [None]
  - DECREASED APPETITE [None]
  - HEAD DISCOMFORT [None]
  - TREMOR [None]
